FAERS Safety Report 6876194-5 (Version None)
Quarter: 2010Q3

REPORT INFORMATION
  Report Type: 
  Country: None (occurrence: None)
  Receive Date: 20100727
  Receipt Date: 20100708
  Transmission Date: 20110219
  Serious: Yes (Hospitalization)
  Sender: FDA-Public Use
  Company Number: A0866819A

PATIENT
  Age: 48 Year
  Sex: Male
  Weight: 106.4 kg

DRUGS (2)
  1. AVANDAMET [Suspect]
     Dosage: 1TAB TWICE PER DAY
     Dates: start: 20060901, end: 20070723
  2. TRICOR [Concomitant]

REACTIONS (1)
  - MYOCARDIAL INFARCTION [None]
